FAERS Safety Report 8398338-9 (Version None)
Quarter: 2012Q2

REPORT INFORMATION
  Report Type: 
  Country: None (occurrence: None)
  Receive Date: 20120524
  Receipt Date: 20120412
  Transmission Date: 20120825
  Serious: Yes (Other)
  Sender: FDA-Public Use
  Company Number: COL_11463_2012

PATIENT
  Sex: Female

DRUGS (2)
  1. COLGATE [Suspect]
     Indication: SENSITIVITY OF TEETH
     Dosage: FILLED HALF THE HEAD OF TOOTHBRUSH/ONCE/ORAL
     Route: 048
     Dates: start: 20120412, end: 20120412
  2. DICLECTIN [Concomitant]

REACTIONS (5)
  - PRURITUS [None]
  - HYPERSENSITIVITY [None]
  - THROAT TIGHTNESS [None]
  - URTICARIA [None]
  - MATERNAL EXPOSURE DURING PREGNANCY [None]
